FAERS Safety Report 10616349 (Version 1)
Quarter: 2014Q4

REPORT INFORMATION
  Report Type: Spontaneous
  Country: RO (occurrence: RO)
  Receive Date: 20141201
  Receipt Date: 20141201
  Transmission Date: 20150529
  Serious: Yes (Hospitalization, Other)
  Sender: FDA-Public Use
  Company Number: RO-ELI_LILLY_AND_COMPANY-RO201411007313

PATIENT
  Sex: Male

DRUGS (3)
  1. ZYPREXA [Suspect]
     Active Substance: OLANZAPINE
     Indication: SCHIZOPHRENIA
     Dosage: 15 MG, QD
     Route: 065
  2. ZYPREXA [Suspect]
     Active Substance: OLANZAPINE
     Indication: PSYCHOTIC DISORDER
     Dosage: 20 MG, QD
     Route: 065
  3. DIAZEPAM. [Concomitant]
     Active Substance: DIAZEPAM

REACTIONS (22)
  - Suicide attempt [Unknown]
  - Venous injury [Unknown]
  - Mental disorder [Unknown]
  - Dysphoria [Unknown]
  - Cognitive disorder [Unknown]
  - Suicidal ideation [Unknown]
  - Insomnia [Unknown]
  - Feeling abnormal [Unknown]
  - Sensory disturbance [Unknown]
  - Hallucination [Unknown]
  - Delusional perception [Unknown]
  - Restlessness [Unknown]
  - Intentional self-injury [Unknown]
  - Poverty of speech [Unknown]
  - Abulia [Unknown]
  - Thinking abnormal [Unknown]
  - Wound [Unknown]
  - Flat affect [Unknown]
  - Activities of daily living impaired [Unknown]
  - Disturbance in social behaviour [Unknown]
  - Emotional poverty [Unknown]
  - Negativism [Unknown]

NARRATIVE: CASE EVENT DATE: 20140802
